FAERS Safety Report 9282903 (Version 3)
Quarter: 2013Q2

REPORT INFORMATION
  Report Type: Spontaneous
  Country: JP (occurrence: JP)
  Receive Date: 20130510
  Receipt Date: 20130612
  Transmission Date: 20140414
  Serious: No
  Sender: FDA-Public Use
  Company Number: JP-SANOFI-AVENTIS-2013SA046908

PATIENT
  Age: 43 Year
  Sex: Male

DRUGS (1)
  1. ALLEGRA [Suspect]
     Indication: URTICARIA
     Route: 048
     Dates: start: 20080701, end: 20130423

REACTIONS (1)
  - Thrombocytopenia [Recovering/Resolving]
